FAERS Safety Report 4421303-0 (Version None)
Quarter: 2004Q3

REPORT INFORMATION
  Report Type: 
  Country: None (occurrence: None)
  Receive Date: 20040809
  Receipt Date: 20040803
  Transmission Date: 20050211
  Serious: Yes (Other)
  Sender: FDA-Public Use
  Company Number: DE-MERCK-0408DEU00024

PATIENT

DRUGS (2)
  1. FOSAMAX [Suspect]
     Route: 048
  2. METHOTREXATE [Concomitant]
     Route: 065

REACTIONS (2)
  - HEPATOCELLULAR DAMAGE [None]
  - PANCYTOPENIA [None]
